FAERS Safety Report 5326951-1 (Version None)
Quarter: 2007Q2

REPORT INFORMATION
  Report Type: 
  Country: None (occurrence: None)
  Receive Date: 20070220
  Receipt Date: 20070108
  Transmission Date: 20071010
  Serious: No
  Sender: FDA-Public Use
  Company Number: WAES 0701USA00843

PATIENT
  Age: 58 Year
  Sex: Male

DRUGS (10)
  1. JANUVIA [Suspect]
     Indication: DIABETES MELLITUS
     Dosage: 100 MG/DAILY/PO
     Route: 048
     Dates: start: 20070102
  2. AVANDIA [Concomitant]
  3. ECOTRIN [Concomitant]
  4. LANOXICAPS [Concomitant]
  5. LYRICA [Concomitant]
  6. TOPROL-XL [Concomitant]
  7. TRICOR [Concomitant]
  8. CAPTOPRIL [Concomitant]
  9. CLOPIDOGREL BISULFATE [Concomitant]
  10. METFORMIN HCL [Concomitant]

REACTIONS (1)
  - CHROMATURIA [None]
